FAERS Safety Report 9109479 (Version 5)
Quarter: 2013Q1

REPORT INFORMATION
  Report Type: Report from Study
  Country: US (occurrence: US)
  Receive Date: 20130222
  Receipt Date: 20130329
  Transmission Date: 20140127
  Serious: Yes (Hospitalization)
  Sender: FDA-Public Use
  Company Number: US-JNJFOC-20130210181

PATIENT
  Age: 11 Year
  Sex: Female
  Weight: 29.7 kg

DRUGS (14)
  1. REMICADE [Suspect]
     Indication: INFLAMMATORY BOWEL DISEASE
     Route: 042
     Dates: start: 20110714, end: 20121112
  2. HUMIRA [Suspect]
     Indication: PRODUCT USED FOR UNKNOWN INDICATION
     Route: 065
     Dates: start: 20121203
  3. ANTIBIOTICS NOS [Concomitant]
     Indication: INFLAMMATORY BOWEL DISEASE
     Route: 065
  4. FERROUS SULPHATE [Concomitant]
     Route: 065
  5. MULTIVITAMINS [Concomitant]
     Route: 065
  6. FOLIC ACID [Concomitant]
     Route: 065
  7. MEGACE [Concomitant]
     Route: 065
  8. VITAMIN D [Concomitant]
     Route: 065
  9. HYDROCORTISONE [Concomitant]
     Route: 065
  10. CALMOSEPTINE [Concomitant]
     Route: 065
  11. ACETAMINOPHEN [Concomitant]
     Route: 065
  12. 5-ASA [Concomitant]
     Route: 048
  13. CALCIUM [Concomitant]
     Route: 065
  14. FLUTICASONE [Concomitant]
     Route: 045

REACTIONS (4)
  - Anaemia [Recovered/Resolved]
  - Malnutrition [Recovered/Resolved]
  - Clostridium difficile infection [Recovered/Resolved]
  - Crohn^s disease [Recovered/Resolved]
